FAERS Safety Report 8389426-1 (Version None)
Quarter: 2012Q2

REPORT INFORMATION
  Report Type: 
  Country: None (occurrence: None)
  Receive Date: 20120528
  Receipt Date: 20120514
  Transmission Date: 20120825
  Serious: No
  Sender: FDA-Public Use
  Company Number: US-BAYER-2012-048496

PATIENT

DRUGS (7)
  1. VICODIN [Concomitant]
  2. SKELAXIN [Concomitant]
     Indication: MUSCLE SPASMS
     Dosage: 800 MG, UNK
  3. MUSCLE RELAXANTS [Concomitant]
  4. NAPROXEN SODIUM [Suspect]
     Indication: BACK PAIN
     Dosage: 2 U, UNK
     Route: 048
  5. LYRICA [Concomitant]
  6. IBUPROFEN (ADVIL) [Concomitant]
  7. PERCOCET [Concomitant]

REACTIONS (1)
  - BACK PAIN [None]
